FAERS Safety Report 7559160-6 (Version None)
Quarter: 2011Q2

REPORT INFORMATION
  Report Type: 
  Country: None (occurrence: None)
  Receive Date: 20110621
  Receipt Date: 20110620
  Transmission Date: 20111010
  Serious: Yes (Hospitalization)
  Sender: FDA-Public Use
  Company Number: IL-PFIZER INC-2011135009

PATIENT
  Age: 70 Year
  Sex: Female

DRUGS (7)
  1. LIRAGLUTIDE (NN2211) [Concomitant]
     Dosage: UNK
  2. CARTIA XT [Concomitant]
     Dosage: UNK
  3. GLUBEN [Concomitant]
     Dosage: UNK
  4. TOVIAZ [Suspect]
     Dosage: 8 MG, UNK
  5. NORVASC [Concomitant]
     Dosage: UNK
  6. LIPITOR [Concomitant]
     Dosage: UNK
  7. GLUCOPHAGE [Concomitant]
     Dosage: UNK

REACTIONS (1)
  - CEREBROVASCULAR ACCIDENT [None]
